FAERS Safety Report 9738381 (Version 3)
Quarter: 2014Q2

REPORT INFORMATION
  Report Type: Report from Study
  Country: DE (occurrence: DE)
  Receive Date: 20131208
  Receipt Date: 20140625
  Transmission Date: 20141212
  Serious: Yes (Hospitalization)
  Sender: FDA-Public Use
  Company Number: DE-ROCHE-1227118

PATIENT
  Age: 42 Year
  Sex: Female
  Weight: 64 kg

DRUGS (4)
  1. BEVACIZUMAB [Suspect]
     Indication: CYSTADENOCARCINOMA OVARY
     Route: 042
     Dates: start: 20121228, end: 20121228
  2. BEVACIZUMAB [Suspect]
     Dosage: LAST DOSE PRIOR TO THE SAE
     Route: 042
     Dates: start: 20130320
  3. CARBOPLATIN [Concomitant]
     Indication: CYSTADENOCARCINOMA OVARY
     Route: 042
     Dates: start: 20121207, end: 20130320
  4. PACLITAXEL [Concomitant]
     Indication: CYSTADENOCARCINOMA OVARY
     Route: 042
     Dates: start: 20121207, end: 20130320

REACTIONS (2)
  - Hydronephrosis [Recovered/Resolved]
  - Lymphocele [Recovered/Resolved]
